FAERS Safety Report 8757074 (Version 1)
Quarter: 2012Q4

REPORT INFORMATION
  Report Type: 
  Country: FR (occurrence: FR)
  Receive Date: 20120828
  Receipt Date: 20120828
  Transmission Date: 20130627
  Serious: Yes (Life-Threatening)
  Sender: FDA-Public Use
  Company Number: FR-PFIZER INC-2012205949

PATIENT
  Age: 74 Year
  Sex: Female

DRUGS (5)
  1. FLUOROURACILE PFIZER [Suspect]
     Indication: COLORECTAL CANCER
     Dosage: UNK
     Route: 042
     Dates: start: 20120810, end: 20120812
  2. SOLU-MEDROL [Suspect]
     Indication: COLORECTAL CANCER
     Dosage: 120 mg, cyclic
     Route: 042
     Dates: start: 20120810, end: 20120810
  3. OXALIPLATIN [Suspect]
     Indication: COLORECTAL CANCER
     Dosage: UNK, cyclic
     Route: 042
     Dates: start: 20120810, end: 20120810
  4. CALCIUM FOLINATE [Suspect]
     Indication: COLORECTAL CANCER
     Dosage: 612 mg, cyclic
     Route: 042
     Dates: start: 20120810, end: 20120810
  5. ZOPHREN [Suspect]
     Indication: COLORECTAL CANCER
     Dosage: 8 mg, cyclic
     Route: 042
     Dates: start: 20120810, end: 20120810

REACTIONS (1)
  - Hypersensitivity [Recovered/Resolved]
